FAERS Safety Report 18291731 (Version 2)
Quarter: 2020Q4

REPORT INFORMATION
  Report Type: Report from Study
  Country: BR (occurrence: BR)
  Receive Date: 20200921
  Receipt Date: 20201008
  Transmission Date: 20210113
  Serious: Yes (Death, Other)
  Sender: FDA-Public Use
  Company Number: PHHY2019BR211007

PATIENT
  Age: 40 Year
  Sex: Female
  Weight: 38 kg

DRUGS (1)
  1. KISQALI [Suspect]
     Active Substance: RIBOCICLIB
     Indication: BREAST CANCER
     Dosage: 3 DF, QD (DAILY)
     Route: 065
     Dates: start: 20190629

REACTIONS (37)
  - Gastrointestinal disorder [Unknown]
  - Pain [Unknown]
  - Functional gastrointestinal disorder [Unknown]
  - Anaemia [Not Recovered/Not Resolved]
  - Asthenia [Not Recovered/Not Resolved]
  - Metastases to lung [Fatal]
  - Alopecia [Recovered/Resolved]
  - Concomitant disease aggravated [Not Recovered/Not Resolved]
  - Skin lesion [Not Recovered/Not Resolved]
  - Diarrhoea [Recovered/Resolved]
  - Metastases to nasal sinuses [Fatal]
  - Metastases to breast [Fatal]
  - Emotional disorder [Recovering/Resolving]
  - Decreased immune responsiveness [Unknown]
  - Nausea [Not Recovered/Not Resolved]
  - Metastasis [Not Recovered/Not Resolved]
  - Dyschezia [Unknown]
  - Decreased appetite [Not Recovered/Not Resolved]
  - Drug ineffective [Unknown]
  - Anxiety [Unknown]
  - Food intolerance [Unknown]
  - Full blood count decreased [Unknown]
  - Haemoglobin decreased [Unknown]
  - Faecal vomiting [Unknown]
  - Dizziness [Recovered/Resolved]
  - Dehydration [Unknown]
  - Liver disorder [Not Recovered/Not Resolved]
  - Vomiting [Unknown]
  - Depression [Not Recovered/Not Resolved]
  - Weight decreased [Recovered/Resolved]
  - Malaise [Recovered/Resolved]
  - Abdominal discomfort [Unknown]
  - Metastases to liver [Fatal]
  - Metastases to bone [Fatal]
  - Intestinal metastasis [Fatal]
  - Neoplasm progression [Not Recovered/Not Resolved]
  - Blood potassium decreased [Unknown]

NARRATIVE: CASE EVENT DATE: 201906
